FAERS Safety Report 16794603 (Version 1)
Quarter: 2019Q4

REPORT INFORMATION
  Report Type: Spontaneous
  Country: US (occurrence: US)
  Receive Date: 20190910
  Receipt Date: 20190910
  Transmission Date: 20200122
  Serious: Yes (Other)
  Sender: FDA-Public Use
  Company Number: None

PATIENT
  Age: 64 Year
  Sex: Female
  Weight: 65.25 kg

DRUGS (17)
  1. ONDANSETRON [Concomitant]
     Active Substance: ONDANSETRON
  2. HEPARIN LOCK FLUSH [Concomitant]
     Active Substance: HEPARIN SODIUM
  3. HYDROCHLOROTHIAZIDE. [Concomitant]
     Active Substance: HYDROCHLOROTHIAZIDE
  4. LIDOCAINE-PRILOCAINE [Concomitant]
     Active Substance: LIDOCAINE\PRILOCAINE
  5. PRILOSEC [Concomitant]
     Active Substance: OMEPRAZOLE MAGNESIUM
  6. CYCLOPHOSPHAMIDE. [Suspect]
     Active Substance: CYCLOPHOSPHAMIDE
     Indication: FALLOPIAN TUBE CANCER
     Route: 048
     Dates: start: 20190709, end: 20190910
  7. MILK OF MAGNESIA [Concomitant]
     Active Substance: MAGNESIUM HYDROXIDE
  8. ACETAMINOPHEN. [Concomitant]
     Active Substance: ACETAMINOPHEN
  9. AVASTIN [Concomitant]
     Active Substance: BEVACIZUMAB
  10. IBUPROFEN. [Concomitant]
     Active Substance: IBUPROFEN
  11. DOXYCYCLINE. [Concomitant]
     Active Substance: DOXYCYCLINE
  12. ADVIL [Concomitant]
     Active Substance: IBUPROFEN
  13. NORVASC [Concomitant]
     Active Substance: AMLODIPINE BESYLATE
  14. NORMAL SALINE FLUSH [Concomitant]
     Active Substance: SODIUM CHLORIDE
  15. TUSSIONEX PENNKINETIC [Concomitant]
     Active Substance: CHLORPHENIRAMINE\HYDROCODONE
  16. DIPHENHYDRAMINE. [Concomitant]
     Active Substance: DIPHENHYDRAMINE
  17. AMLODIPINE [Concomitant]
     Active Substance: AMLODIPINE BESYLATE

REACTIONS (1)
  - Disease progression [None]

NARRATIVE: CASE EVENT DATE: 20190910
